FAERS Safety Report 17201574 (Version 1)
Quarter: 2019Q4

REPORT INFORMATION
  Report Type: Spontaneous
  Country: US (occurrence: US)
  Receive Date: 20191203
  Receipt Date: 20191203
  Transmission Date: 20200122
  Serious: Yes (Other)
  Sender: FDA-Public Use
  Company Number: None

PATIENT
  Age: 48 Day
  Weight: 95.25 kg

DRUGS (1)
  1. CURALEAF HEMP OIL [Suspect]
     Active Substance: CANNABIS SATIVA SEED OIL\HERBALS
     Route: 048

REACTIONS (2)
  - Abdominal pain upper [None]
  - Diarrhoea [None]

NARRATIVE: CASE EVENT DATE: 20191101
